FAERS Safety Report 6845496-0 (Version None)
Quarter: 2010Q3

REPORT INFORMATION
  Report Type: 
  Country: None (occurrence: None)
  Receive Date: 20100715
  Receipt Date: 20070922
  Transmission Date: 20110219
  Serious: No
  Sender: FDA-Public Use
  Company Number: US-PFIZER INC-2007070662

PATIENT
  Sex: Female
  Weight: 53.5 kg

DRUGS (12)
  1. CHANTIX [Suspect]
     Indication: SMOKING CESSATION THERAPY
     Route: 048
     Dates: start: 20070808
  2. ZOCOR [Concomitant]
  3. ZOCOR [Concomitant]
  4. ZOCOR [Concomitant]
  5. ZOCOR [Concomitant]
  6. ZOCOR [Concomitant]
  7. ZOCOR [Concomitant]
  8. VITAMINS [Concomitant]
  9. COPAXONE [Concomitant]
     Route: 030
  10. VICODIN [Concomitant]
  11. LORTAB [Concomitant]
  12. KLONOPIN [Concomitant]

REACTIONS (3)
  - ABNORMAL DREAMS [None]
  - CONSTIPATION [None]
  - CRYING [None]
